FAERS Safety Report 14405613 (Version 6)
Quarter: 2019Q4

REPORT INFORMATION
  Report Type: Spontaneous
  Country: US (occurrence: US)
  Receive Date: 20180118
  Receipt Date: 20191212
  Transmission Date: 20200122
  Serious: No
  Sender: FDA-Public Use
  Company Number: US-PFIZER INC-2018023098

PATIENT
  Age: 62 Year
  Sex: Female
  Weight: 97.52 kg

DRUGS (1)
  1. VENLAFAXINE HCL [Suspect]
     Active Substance: VENLAFAXINE HYDROCHLORIDE
     Indication: DEPRESSION
     Dosage: 150 MG, TWICE A DAY
     Route: 048

REACTIONS (6)
  - Tearfulness [Unknown]
  - Fatigue [Unknown]
  - Apathy [Unknown]
  - Insomnia [Unknown]
  - Drug ineffective [Unknown]
  - Overdose [Unknown]
